FAERS Safety Report 10101973 (Version 1)
Quarter: 2014Q2

REPORT INFORMATION
  Report Type: Spontaneous
  Country: US (occurrence: US)
  Receive Date: 20140424
  Receipt Date: 20140424
  Transmission Date: 20141212
  Serious: Yes (Hospitalization)
  Sender: FDA-Public Use
  Company Number: US-BRISTOL-MYERS SQUIBB COMPANY-20641890

PATIENT
  Age: 9 Decade
  Sex: Male

DRUGS (2)
  1. SPRYCEL [Suspect]
     Indication: ANAEMIA
     Dosage: TABS,THERAPY ONG
     Route: 048
  2. SPRYCEL [Suspect]
     Indication: ACUTE MYELOID LEUKAEMIA
     Dosage: TABS,THERAPY ONG
     Route: 048

REACTIONS (2)
  - Dysuria [Unknown]
  - Off label use [Unknown]
